FAERS Safety Report 23757834 (Version 1)
Quarter: 2024Q2

REPORT INFORMATION
  Report Type: Spontaneous
  Country: US (occurrence: None)
  Receive Date: 20240418
  Receipt Date: 20240418
  Transmission Date: 20240716
  Serious: Yes (Life-Threatening)
  Sender: FDA-Public Use
  Company Number: None

PATIENT
  Age: 27 Year
  Sex: Female
  Weight: 41.73 kg

DRUGS (6)
  1. ZYRTEC [Suspect]
     Active Substance: CETIRIZINE HYDROCHLORIDE
     Indication: Lacrimation increased
     Dosage: 1 TBLET EVERY 24 HRS. ?
     Route: 048
     Dates: start: 20231119, end: 20231119
  2. ZYRTEC [Suspect]
     Active Substance: CETIRIZINE HYDROCHLORIDE
     Indication: Throat irritation
  3. junel fe birth control [Concomitant]
  4. once a day women^s [Concomitant]
  5. mult vitamin [Concomitant]
  6. gummies [Concomitant]

REACTIONS (3)
  - Asthenia [None]
  - Loss of consciousness [None]
  - Head injury [None]

NARRATIVE: CASE EVENT DATE: 20231120
